FAERS Safety Report 13449332 (Version 1)
Quarter: 2017Q2

REPORT INFORMATION
  Report Type: Spontaneous
  Country: US (occurrence: US)
  Receive Date: 20170417
  Receipt Date: 20170417
  Transmission Date: 20170830
  Serious: No
  Sender: FDA-Public Use
  Company Number: US-EAGLE PHARMACEUTICALS, INC.-US-2017EAG000018

PATIENT

DRUGS (3)
  1. DOCETAXEL INJECTION NON-ALCOHOL FORMULA [Suspect]
     Active Substance: DOCETAXEL
     Indication: BREAST CANCER
     Dosage: UNK
     Dates: start: 20161019
  2. CYTOXAN [Concomitant]
     Active Substance: CYCLOPHOSPHAMIDE
     Indication: PRODUCT USED FOR UNKNOWN INDICATION
     Dosage: UNK
     Dates: start: 20170119
  3. DOCETAXEL INJECTION NON-ALCOHOL FORMULA [Suspect]
     Active Substance: DOCETAXEL
     Dosage: UNK (CYCLE 5)

REACTIONS (3)
  - Skin discolouration [Unknown]
  - Hypoaesthesia [Unknown]
  - Peripheral swelling [Unknown]
